FAERS Safety Report 5034886-7 (Version None)
Quarter: 2006Q2

REPORT INFORMATION
  Report Type: 
  Country: None (occurrence: None)
  Receive Date: 20060627
  Receipt Date: 20060616
  Transmission Date: 20061013
  Serious: Yes (Hospitalization)
  Sender: FDA-Public Use
  Company Number: PHFR2006GB02013

PATIENT
  Age: 27 Year
  Sex: Male
  Weight: 50 kg

DRUGS (1)
  1. CLOZAPINE [Suspect]
     Dosage: 400 MG/DAY
     Route: 048
     Dates: start: 20060414, end: 20060526

REACTIONS (1)
  - HAEMOLYSIS [None]
